FAERS Safety Report 10112077 (Version 1)
Quarter: 2014Q2

REPORT INFORMATION
  Report Type: Spontaneous
  Country: DE (occurrence: DE)
  Receive Date: 20140425
  Receipt Date: 20140425
  Transmission Date: 20141212
  Serious: Yes (Death, Hospitalization)
  Sender: FDA-Public Use
  Company Number: DE-DRREDDYS-GER/GER/14/0039864

PATIENT
  Age: 59 Year
  Sex: Female

DRUGS (1)
  1. ALENDRONIC ACID [Suspect]
     Indication: OSTEOPOROSIS
     Route: 048

REACTIONS (4)
  - Osteonecrosis of jaw [Unknown]
  - Abscess neck [Unknown]
  - Embolism [Fatal]
  - Septic shock [Fatal]
